FAERS Safety Report 24201968 (Version 1)
Quarter: 2024Q3

REPORT INFORMATION
  Report Type: Spontaneous
  Country: IT (occurrence: IT)
  Receive Date: 20240812
  Receipt Date: 20240812
  Transmission Date: 20241017
  Serious: Yes (Other)
  Sender: MYLAN
  Company Number: IT-GSKCCFEMEA-Case-02030238_AE-85831

PATIENT
  Sex: Male

DRUGS (3)
  1. NORVASC [Suspect]
     Active Substance: AMLODIPINE BESYLATE
     Indication: Blood pressure abnormal
     Dosage: UNK
     Route: 065
  2. FLUTICASONE FUROATE\VILANTEROL TRIFENATATE [Suspect]
     Active Substance: FLUTICASONE FUROATE\VILANTEROL TRIFENATATE
     Indication: Asthma
     Dosage: UNK,
     Route: 065
  3. CLONAZEPAM [Suspect]
     Active Substance: CLONAZEPAM
     Indication: Blood pressure abnormal
     Dosage: UNK
     Route: 065

REACTIONS (4)
  - Hemianopia [Recovered/Resolved]
  - Condition aggravated [Recovered/Resolved]
  - Blood pressure abnormal [Unknown]
  - Dysphonia [Recovered/Resolved]
